FAERS Safety Report 24296643 (Version 1)
Quarter: 2024Q3

REPORT INFORMATION
  Report Type: Spontaneous
  Country: US (occurrence: US)
  Receive Date: 20240909
  Receipt Date: 20240909
  Transmission Date: 20241016
  Serious: No
  Sender: TAKEDA
  Company Number: US-TAKEDA-2024TUS088638

PATIENT
  Age: 67 Year
  Sex: Female
  Weight: 57 kg

DRUGS (1)
  1. GAMMAGARD LIQUID [Suspect]
     Active Substance: HUMAN IMMUNOGLOBULIN G
     Indication: Post procedural complication
     Dosage: 30 GRAM, MONTHLY
     Route: 042
     Dates: start: 202405

REACTIONS (2)
  - No adverse event [Unknown]
  - Product use in unapproved indication [Unknown]

NARRATIVE: CASE EVENT DATE: 20240501
